FAERS Safety Report 7653608-4 (Version None)
Quarter: 2011Q3

REPORT INFORMATION
  Report Type: 
  Country: None (occurrence: None)
  Receive Date: 20110803
  Receipt Date: 20110721
  Transmission Date: 20111222
  Serious: Yes (Other)
  Sender: FDA-Public Use
  Company Number: US-ROCHE-775835

PATIENT
  Sex: Female
  Weight: 44.5 kg

DRUGS (1)
  1. ACCUTANE [Suspect]
     Indication: ACNE
     Route: 065
     Dates: start: 19961101, end: 19970301

REACTIONS (7)
  - PANIC ATTACK [None]
  - IRRITABLE BOWEL SYNDROME [None]
  - INFLAMMATORY BOWEL DISEASE [None]
  - DEPRESSION [None]
  - OBSESSIVE-COMPULSIVE DISORDER [None]
  - COLITIS ULCERATIVE [None]
  - GENERALISED ANXIETY DISORDER [None]
